FAERS Safety Report 8596698-7 (Version None)
Quarter: 2012Q3

REPORT INFORMATION
  Report Type: 
  Country: None (occurrence: None)
  Receive Date: 20120815
  Receipt Date: 20120806
  Transmission Date: 20120928
  Serious: Yes (Hospitalization)
  Sender: FDA-Public Use
  Company Number: PT-BAXTER-2012BAX013822

PATIENT
  Sex: Female

DRUGS (3)
  1. PHYSIOSOL IN PLASTIC CONTAINER [Suspect]
     Route: 033
     Dates: start: 20111013
  2. PHYSIOSOL IN PLASTIC CONTAINER [Suspect]
     Route: 033
     Dates: start: 20111013
  3. EXTRANEAL [Suspect]
     Route: 033
     Dates: start: 20111013

REACTIONS (3)
  - PERITONITIS BACTERIAL [None]
  - PYREXIA [None]
  - URINARY TRACT INFECTION [None]
